FAERS Safety Report 5077268-4 (Version None)
Quarter: 2006Q3

REPORT INFORMATION
  Report Type: 
  Country: None (occurrence: None)
  Receive Date: 20060810
  Receipt Date: 20060116
  Transmission Date: 20061208
  Serious: No
  Sender: FDA-Public Use
  Company Number: US-GLAXOSMITHKLINE-A0589406A

PATIENT
  Age: 81 Year
  Sex: Female

DRUGS (7)
  1. PAROXETINE HCL [Suspect]
     Dosage: 10MG AT NIGHT
     Route: 048
     Dates: start: 20051101, end: 20051101
  2. GLUCOPHAGE [Concomitant]
  3. ACTOS [Concomitant]
  4. CAPTOPRIL [Concomitant]
  5. SPIRONOLACTONE [Concomitant]
  6. MOBIC [Concomitant]
  7. ZOCOR [Concomitant]

REACTIONS (3)
  - IRRITABILITY [None]
  - PSYCHOMOTOR HYPERACTIVITY [None]
  - RETCHING [None]
